FAERS Safety Report 4548047-9 (Version None)
Quarter: 2004Q4

REPORT INFORMATION
  Report Type: 
  Country: None (occurrence: None)
  Receive Date: 20041227
  Receipt Date: 20040928
  Transmission Date: 20050328
  Serious: No
  Sender: FDA-Public Use
  Company Number: 04P-163-0275179-00

PATIENT
  Age: 56 Year
  Sex: Female
  Weight: 60.782 kg

DRUGS (13)
  1. HUMIRA [Suspect]
     Indication: RHEUMATOID ARTHRITIS
     Dosage: 40 MG, 1 IN 2 WK, SUBCUTANEOUS
     Route: 059
     Dates: start: 20031201
  2. METHOTREXATE SODIUM [Concomitant]
  3. PREDNISONE [Concomitant]
  4. ROFECOXIB [Concomitant]
  5. ATENOLOL [Concomitant]
  6. ALENDRONATE SODIUM [Concomitant]
  7. FOLIC ACID [Concomitant]
  8. POTASSIUM [Concomitant]
  9. CLONIDINE [Concomitant]
  10. HYDROCHLOROTHIAZIDE [Concomitant]
  11. NULEV [Concomitant]
  12. VICODIN [Concomitant]
  13. ALPRAZOLAM [Concomitant]

REACTIONS (1)
  - RASH [None]
